FAERS Safety Report 6831239-3 (Version None)
Quarter: 2010Q3

REPORT INFORMATION
  Report Type: 
  Country: None (occurrence: None)
  Receive Date: 20100712
  Receipt Date: 20100707
  Transmission Date: 20110219
  Serious: Yes (Life-Threatening)
  Sender: FDA-Public Use
  Company Number: DE-JNJFOC-20100701972

PATIENT
  Age: 52 Year
  Sex: Male
  Weight: 83 kg

DRUGS (4)
  1. LEVOFLOXACIN [Suspect]
     Indication: PNEUMONIA
     Route: 065
  2. PIPERACILLIN [Suspect]
     Indication: PNEUMONIA
     Route: 065
  3. SULBACTAM [Suspect]
     Indication: PNEUMONIA
     Route: 065
  4. INTRAVENOUS FLUIDS, NOS [Suspect]
     Indication: PNEUMONIA
     Route: 042

REACTIONS (3)
  - ACUTE RESPIRATORY DISTRESS SYNDROME [None]
  - DRUG INEFFECTIVE [None]
  - HYPOTENSION [None]
